FAERS Safety Report 6186933-7 (Version None)
Quarter: 2009Q2

REPORT INFORMATION
  Report Type: 
  Country: None (occurrence: None)
  Receive Date: 20090512
  Receipt Date: 20090503
  Transmission Date: 20091009
  Serious: Yes (Other)
  Sender: FDA-Public Use
  Company Number: IL-CELGENEUS-082-50794-09050117

PATIENT
  Sex: Male

DRUGS (3)
  1. VIDAZA [Suspect]
     Route: 058
  2. VIDAZA [Suspect]
     Route: 058
     Dates: end: 20090430
  3. VIDAZA [Suspect]
     Route: 051

REACTIONS (2)
  - RASH [None]
  - SKIN REACTION [None]
